FAERS Safety Report 12336909 (Version 1)
Quarter: 2016Q2

REPORT INFORMATION
  Report Type: Report from Study
  Country: US (occurrence: US)
  Receive Date: 20160505
  Receipt Date: 20160505
  Transmission Date: 20160815
  Serious: Yes (Other)
  Sender: FDA-Public Use
  Company Number: US-BAYER-2015-444107

PATIENT
  Age: 60 Year
  Sex: Female

DRUGS (4)
  1. NEXAVAR [Suspect]
     Active Substance: SORAFENIB
     Indication: HEPATOCELLULAR CARCINOMA
     Dosage: 400 MG, BID
     Route: 048
     Dates: start: 2015, end: 20160319
  2. NEXAVAR [Suspect]
     Active Substance: SORAFENIB
     Indication: HEPATOCELLULAR CARCINOMA
     Dosage: 200 MG, BID
     Route: 048
     Dates: start: 20151002
  3. NEXAVAR [Suspect]
     Active Substance: SORAFENIB
     Indication: HEPATOCELLULAR CARCINOMA
     Dosage: 600 MG DAILY DOSE(2TABLETS OF 200 MG QAM AND 200 MG QPM)
     Route: 048
     Dates: end: 2015
  4. NEXAVAR [Suspect]
     Active Substance: SORAFENIB
     Indication: HEPATOCELLULAR CARCINOMA
     Dosage: 400 MG, BID
     Route: 048
     Dates: start: 2016

REACTIONS (12)
  - Procedural pain [None]
  - Rash pruritic [None]
  - Hepatic cancer [Not Recovered/Not Resolved]
  - Pain in extremity [None]
  - Haematochezia [None]
  - Medical procedure [None]
  - Palmar-plantar erythrodysaesthesia syndrome [None]
  - Paraesthesia [None]
  - Arthralgia [Not Recovered/Not Resolved]
  - Skin exfoliation [Unknown]
  - Pain in extremity [Unknown]
  - Pruritus [None]

NARRATIVE: CASE EVENT DATE: 20151013
